FAERS Safety Report 7286405-2 (Version None)
Quarter: 2011Q1

REPORT INFORMATION
  Report Type: 
  Country: None (occurrence: None)
  Receive Date: 20110210
  Receipt Date: 20110207
  Transmission Date: 20110831
  Serious: Yes (Hospitalization)
  Sender: FDA-Public Use
  Company Number: DE-ABBOTT-11P-062-0703134-00

PATIENT
  Age: 40 Year
  Sex: Male
  Weight: 89.4 kg

DRUGS (8)
  1. TRUVADA [Concomitant]
     Indication: PRODUCT USED FOR UNKNOWN INDICATION
     Dosage: 200/50
     Route: 048
     Dates: start: 20090218
  2. CLARITHROMYCIN [Suspect]
     Indication: PRODUCT USED FOR UNKNOWN INDICATION
     Dosage: 500MG P.O.
     Dates: start: 20090223
  3. DECORTIN [Concomitant]
     Indication: PRODUCT USED FOR UNKNOWN INDICATION
     Dates: start: 20090707
  4. KALETRA [Suspect]
     Indication: HIV INFECTION
     Dosage: P.O.,DOSE:800/200
     Dates: start: 20090218
  5. OMEPRAZOLE [Concomitant]
     Indication: PRODUCT USED FOR UNKNOWN INDICATION
     Dosage: 40MG P.O.
     Dates: start: 20090427
  6. VALORON N [Concomitant]
     Indication: PRODUCT USED FOR UNKNOWN INDICATION
     Dosage: 10 DROPS P.O.
     Dates: start: 20090707
  7. MYCOBUTIN [Concomitant]
     Indication: PRODUCT USED FOR UNKNOWN INDICATION
     Dates: start: 20090223
  8. COTRIM [Concomitant]
     Indication: PRODUCT USED FOR UNKNOWN INDICATION
     Route: 048
     Dates: start: 20090218

REACTIONS (4)
  - INTESTINAL MASS [None]
  - MESENTERITIS [None]
  - ABDOMINAL PAIN [None]
  - IMMUNE RECONSTITUTION SYNDROME [None]
